FAERS Safety Report 17424676 (Version 1)
Quarter: 2020Q1

REPORT INFORMATION
  Report Type: Spontaneous
  Country: PL (occurrence: PL)
  Receive Date: 20200217
  Receipt Date: 20200217
  Transmission Date: 20200409
  Serious: Yes (Hospitalization, Other)
  Sender: FDA-Public Use
  Company Number: PL-GLAXOSMITHKLINE-PL2020024667

PATIENT
  Age: 14 Year
  Sex: Female
  Weight: 116 kg

DRUGS (4)
  1. DICORTINEFF [Concomitant]
     Indication: CONJUNCTIVITIS
     Dosage: 2 DF, QD, 1 DROP PER EYE
     Route: 047
     Dates: start: 20190528
  2. ZINNAT [Suspect]
     Active Substance: CEFUROXIME
     Indication: BRONCHITIS
     Dosage: 500 MG
     Route: 048
     Dates: start: 20190528, end: 20190528
  3. MUCOSOLVAN [Concomitant]
     Active Substance: AMBROXOL HYDROCHLORIDE
     Indication: CONJUNCTIVITIS
     Dosage: 1 DF, QD
     Route: 048
     Dates: start: 20190528
  4. BIODACYNA [Concomitant]
     Active Substance: AMIKACIN SULFATE
     Indication: CONJUNCTIVITIS
     Dosage: 2 DF, QD, 1 DROP PER EYE
     Route: 047
     Dates: start: 20190528

REACTIONS (10)
  - Blister [Recovering/Resolving]
  - Vomiting [Recovering/Resolving]
  - Rash macular [Recovering/Resolving]
  - Stevens-Johnson syndrome [Unknown]
  - Urticaria [Recovering/Resolving]
  - Anaphylactic reaction [Unknown]
  - Cough [Recovering/Resolving]
  - Hypoaesthesia oral [Recovering/Resolving]
  - Lip oedema [Recovering/Resolving]
  - Mucosal erosion [Recovering/Resolving]

NARRATIVE: CASE EVENT DATE: 201905
